FAERS Safety Report 9096081 (Version 1)
Quarter: 2013Q1

REPORT INFORMATION
  Report Type: Spontaneous
  Country: IT (occurrence: IT)
  Receive Date: 20130207
  Receipt Date: 20130207
  Transmission Date: 20140127
  Serious: Yes (Hospitalization)
  Sender: FDA-Public Use
  Company Number: IT-ASTRAZENECA-2013SE06807

PATIENT
  Age: 16955 Day
  Sex: Female

DRUGS (13)
  1. SEROQUEL [Suspect]
     Indication: DEPRESSION
     Route: 048
     Dates: end: 20121223
  2. SEROQUEL [Suspect]
     Indication: ANXIETY
     Route: 048
     Dates: end: 20121223
  3. SEROQUEL [Suspect]
     Indication: DEPRESSION
     Route: 048
     Dates: start: 20121224
  4. SEROQUEL [Suspect]
     Indication: ANXIETY
     Route: 048
     Dates: start: 20121224
  5. SEROQUEL [Suspect]
     Indication: DEPRESSION
     Route: 048
  6. SEROQUEL [Suspect]
     Indication: ANXIETY
     Route: 048
  7. TAVOR [Suspect]
     Indication: DEPRESSION
     Route: 048
     Dates: end: 20121223
  8. TAVOR [Suspect]
     Indication: ANXIETY
     Route: 048
     Dates: end: 20121223
  9. TAVOR [Suspect]
     Indication: DEPRESSION
     Route: 048
     Dates: start: 20121224, end: 20130118
  10. TAVOR [Suspect]
     Indication: ANXIETY
     Route: 048
     Dates: start: 20121224, end: 20130118
  11. TAVOR [Suspect]
     Indication: DEPRESSION
     Route: 048
  12. TAVOR [Suspect]
     Indication: ANXIETY
     Route: 048
  13. ESOPRAL [Concomitant]

REACTIONS (3)
  - Withdrawal syndrome [Recovering/Resolving]
  - Convulsion [Recovering/Resolving]
  - Intentional drug misuse [Recovered/Resolved]
